FAERS Safety Report 8352266-3 (Version None)
Quarter: 2012Q2

REPORT INFORMATION
  Report Type: 
  Country: None (occurrence: None)
  Receive Date: 20120511
  Receipt Date: 20120503
  Transmission Date: 20120825
  Serious: Yes (Hospitalization)
  Sender: FDA-Public Use
  Company Number: US-BAYER-2012-044453

PATIENT
  Age: 47 Year
  Sex: Female
  Weight: 72.562 kg

DRUGS (5)
  1. DARVOCET [Concomitant]
     Indication: PAIN IN EXTREMITY
  2. YAZ [Suspect]
     Indication: DYSFUNCTIONAL UTERINE BLEEDING
     Dosage: UNK
     Dates: start: 20061016, end: 20070711
  3. NAPROXEN (ALEVE) [Concomitant]
     Dosage: 220 MG, BID
     Route: 048
  4. YASMIN [Suspect]
     Indication: DYSFUNCTIONAL UTERINE BLEEDING
     Dosage: UNK
     Dates: start: 20050809, end: 20061026
  5. FLEXERIL [Concomitant]
     Indication: PAIN
     Dosage: 6 MG, HS
     Route: 048

REACTIONS (3)
  - PAIN IN EXTREMITY [None]
  - HYPOAESTHESIA [None]
  - PULMONARY EMBOLISM [None]
